FAERS Safety Report 21151510 (Version 1)
Quarter: 2022Q3

REPORT INFORMATION
  Report Type: Spontaneous
  Country: US (occurrence: US)
  Receive Date: 20220730
  Receipt Date: 20220730
  Transmission Date: 20221027
  Serious: No
  Sender: FDA-Public Use
  Company Number: US-Accord-238855

PATIENT
  Age: 77 Year
  Sex: Male
  Weight: 74.84 kg

DRUGS (1)
  1. AMITRIPTYLINE [Suspect]
     Active Substance: AMITRIPTYLINE
     Indication: Product used for unknown indication
     Dosage: STRENGTH: 25 MG ?1.5 TABLETS PER DAY

REACTIONS (1)
  - Rash pruritic [Unknown]
